FAERS Safety Report 5759889-6 (Version None)
Quarter: 2008Q2

REPORT INFORMATION
  Report Type: 
  Country: None (occurrence: None)
  Receive Date: 20080605
  Receipt Date: 20080529
  Transmission Date: 20081010
  Serious: Yes (Hospitalization)
  Sender: FDA-Public Use
  Company Number: GB-BAYER-200811375BNE

PATIENT
  Age: 38 Year
  Sex: Male
  Weight: 57 kg

DRUGS (3)
  1. SORAFENIB [Suspect]
     Indication: DRUG USE FOR UNKNOWN INDICATION
     Dates: start: 20071107
  2. SORAFENIB [Suspect]
     Dates: start: 20071213
  3. SORAFENIB [Suspect]
     Dates: start: 20080422, end: 20080501

REACTIONS (4)
  - ABDOMINAL PAIN LOWER [None]
  - C-REACTIVE PROTEIN INCREASED [None]
  - CAECITIS [None]
  - PYREXIA [None]
